FAERS Safety Report 25418828 (Version 1)
Quarter: 2025Q2

REPORT INFORMATION
  Report Type: Report from Study
  Country: US (occurrence: US)
  Receive Date: 20250610
  Receipt Date: 20250610
  Transmission Date: 20250717
  Serious: Yes (Death, Other)
  Sender: GILEAD
  Company Number: US-GILEAD-2025-0715202

PATIENT
  Age: 66 Year
  Sex: Female

DRUGS (5)
  1. AMBRISENTAN [Suspect]
     Active Substance: AMBRISENTAN
     Indication: Pulmonary arterial hypertension
     Dosage: 10MG BY MOUTH 1 TIME A DAY
     Route: 048
     Dates: start: 202008
  2. ORENITRAM [Suspect]
     Active Substance: TREPROSTINIL
     Indication: Pulmonary arterial hypertension
     Dosage: 2MG BY MOUTH EVERY 8 HOURS
     Route: 048
     Dates: start: 202406
  3. ORENITRAM [Suspect]
     Active Substance: TREPROSTINIL
     Dosage: 0.125MG BY MOUTH EVERY 8 HOURS
     Route: 048
     Dates: start: 202406
  4. ORENITRAM [Suspect]
     Active Substance: TREPROSTINIL
     Dosage: 0.25MG BY MOUTH EVERY 8 HOURS
     Route: 048
     Dates: start: 202406
  5. ORENITRAM [Suspect]
     Active Substance: TREPROSTINIL
     Dosage: 2.375MG BY MOUTH 3 TIMES DAILY
     Route: 048
     Dates: start: 202406

REACTIONS (2)
  - Death [Fatal]
  - Malaise [Not Recovered/Not Resolved]
